FAERS Safety Report 9649166 (Version 2)
Quarter: 2013Q4

REPORT INFORMATION
  Report Type: Spontaneous
  Country: US (occurrence: US)
  Receive Date: 20131028
  Receipt Date: 20131028
  Transmission Date: 20140711
  Serious: No
  Sender: FDA-Public Use
  Company Number: -SAAVPROD-POMP-1002677

PATIENT
  Age: 58 Year
  Sex: Female

DRUGS (3)
  1. ALGLUCOSIDASE ALFA [Suspect]
     Indication: GLYCOGEN STORAGE DISEASE TYPE II
     Dosage: 20 MG/KG, Q2W
     Route: 042
     Dates: start: 20060531
  2. LIDOCAINE [Concomitant]
     Indication: LOCAL ANAESTHESIA
     Route: 061
  3. GUAIFENESIN [Concomitant]
     Indication: MULTIPLE ALLERGIES
     Route: 065

REACTIONS (3)
  - Seborrhoeic dermatitis [Not Recovered/Not Resolved]
  - Lymphadenopathy [Not Recovered/Not Resolved]
  - Fungal skin infection [Not Recovered/Not Resolved]
